FAERS Safety Report 25723192 (Version 3)
Quarter: 2025Q4

REPORT INFORMATION
  Report Type: Spontaneous
  Country: CN (occurrence: CN)
  Receive Date: 20250825
  Receipt Date: 20251124
  Transmission Date: 20260117
  Serious: Yes (Other)
  Sender: NOVO NORDISK
  Company Number: CN-NOVOPROD-1503274

PATIENT
  Age: 77 Year
  Sex: Male
  Weight: 80 kg

DRUGS (4)
  1. NOVOLIN R [Suspect]
     Active Substance: INSULIN HUMAN
     Dosage: 38 IU, QD (20 IU MORNING, 18 IU EVENING)
  2. NOVOLIN R [Suspect]
     Active Substance: INSULIN HUMAN
     Indication: Type 2 diabetes mellitus
     Dosage: UNK
     Dates: start: 2002
  3. METFORMIN [Concomitant]
     Active Substance: METFORMIN HYDROCHLORIDE
     Indication: Type 2 diabetes mellitus
     Dosage: 1 DF BID
  4. GLUCOBAY [Concomitant]
     Active Substance: ACARBOSE
     Indication: Product used for unknown indication
     Dosage: 1 DF TID

REACTIONS (8)
  - Diabetic eye disease [Unknown]
  - Cataract [Unknown]
  - Eye operation [Unknown]
  - Hypoacusis [Not Recovered/Not Resolved]
  - Diabetic complication [Unknown]
  - Hypertension [Recovering/Resolving]
  - Hyperlipidaemia [Recovering/Resolving]
  - Hyperglycaemia [Not Recovered/Not Resolved]
